FAERS Safety Report 6979932-6 (Version None)
Quarter: 2010Q3

REPORT INFORMATION
  Report Type: 
  Country: None (occurrence: None)
  Receive Date: 20100914
  Receipt Date: 20100909
  Transmission Date: 20110219
  Serious: Yes (Hospitalization)
  Sender: FDA-Public Use
  Company Number: US-WYE-H16853710

PATIENT
  Sex: Male
  Weight: 91 kg

DRUGS (7)
  1. TEMSIROLIMUS [Suspect]
     Indication: PROSTATE CANCER METASTATIC
     Route: 042
     Dates: start: 20100720
  2. HYDROCODONE BITARTRATE + ACETAMINOPHEN [Concomitant]
     Dosage: 5 MG FREQUENCY NOT PROVIDED
     Route: 065
     Dates: start: 20100702
  3. NITROFURANTOIN [Concomitant]
     Dosage: 100 MG  FREQUENCY NOT PROVIDED
     Route: 065
     Dates: start: 20080101
  4. CALCIUM PHOSPHATE/CALCIUM SODIUM LACTATE/ERGOCALCIFEROL [Concomitant]
     Dosage: NOT PROVIDED
     Route: 065
     Dates: start: 20080101
  5. FUROSEMIDE [Concomitant]
     Dosage: 40 MG  FREQUENCY NOT PROVIDED
     Route: 065
     Dates: start: 20080101
  6. BEVACIZUMAB [Suspect]
     Indication: PROSTATE CANCER METASTATIC
     Route: 042
     Dates: start: 20100720
  7. PRAVASTATIN SODIUM [Concomitant]
     Dosage: 20 MG  FREQUENCY NOT PROVIDED
     Route: 065
     Dates: start: 20080101

REACTIONS (5)
  - DECREASED APPETITE [None]
  - FATIGUE [None]
  - NAUSEA [None]
  - VOMITING [None]
  - WEIGHT DECREASED [None]
